FAERS Safety Report 19143603 (Version 1)
Quarter: 2021Q2

REPORT INFORMATION
  Report Type: Report from Study
  Country: None (occurrence: US)
  Receive Date: 20210415
  Receipt Date: 20210415
  Transmission Date: 20210717
  Serious: Yes (Hospitalization)
  Sender: FDA-Public Use
  Company Number: US-ABBVIE-21K-163-3854794-00

PATIENT
  Age: 86 Year
  Sex: Female

DRUGS (4)
  1. IMBRUVICA [Suspect]
     Active Substance: IBRUTINIB
     Indication: WALDENSTROM^S MACROGLOBULINAEMIA
     Route: 048
     Dates: start: 20210310
  2. RITUXAN [Suspect]
     Active Substance: RITUXIMAB
     Dosage: DOSE REDUCED
     Route: 048
  3. RITUXAN [Suspect]
     Active Substance: RITUXIMAB
     Indication: PRODUCT USED FOR UNKNOWN INDICATION
     Route: 048
  4. IMBRUVICA [Suspect]
     Active Substance: IBRUTINIB
     Dosage: DOSE REDUCED
     Route: 048

REACTIONS (3)
  - Dehydration [Unknown]
  - White blood cell count increased [Unknown]
  - Hypertension [Unknown]

NARRATIVE: CASE EVENT DATE: 202103
